FAERS Safety Report 4270544-4 (Version None)
Quarter: 2004Q1

REPORT INFORMATION
  Report Type: 
  Country: None (occurrence: None)
  Receive Date: 20040113
  Receipt Date: 20040113
  Transmission Date: 20041129
  Serious: Yes (Other)
  Sender: FDA-Public Use
  Company Number: None

PATIENT
  Age: 53 Year
  Sex: Female
  Weight: 61.2356 kg

DRUGS (6)
  1. ACTIQ [Suspect]
     Indication: MIGRAINE
     Dosage: 400 MCG Q 2 HRS OTHER
     Route: 050
     Dates: start: 20031213, end: 20040112
  2. ACTIQ [Suspect]
     Indication: POST-TRAUMATIC STRESS DISORDER
     Dosage: 400 MCG Q 2 HRS OTHER
     Route: 050
     Dates: start: 20031213, end: 20040112
  3. AMERGE [Concomitant]
  4. DURAGESIC [Concomitant]
  5. PHENERGAN HCL [Concomitant]
  6. FIORICET [Concomitant]

REACTIONS (1)
  - RASH PRURITIC [None]
